FAERS Safety Report 6234502-2 (Version None)
Quarter: 2009Q2

REPORT INFORMATION
  Report Type: 
  Country: None (occurrence: None)
  Receive Date: 20090618
  Receipt Date: 20081016
  Transmission Date: 20091009
  Serious: No
  Sender: FDA-Public Use
  Company Number: US-BRISTOL-MYERS SQUIBB COMPANY-14381107

PATIENT

DRUGS (1)
  1. CARBIDOPA + LEVODOPA [Suspect]
     Route: 065

REACTIONS (1)
  - FLUSHING [None]
